FAERS Safety Report 23063490 (Version 1)
Quarter: 2023Q4

REPORT INFORMATION
  Report Type: Spontaneous
  Country: GB (occurrence: GB)
  Receive Date: 20231013
  Receipt Date: 20231013
  Transmission Date: 20240110
  Serious: Yes (Hospitalization, Other)
  Sender: FDA-Public Use
  Company Number: GB-SA-2022SA411556

PATIENT
  Age: 68 Year
  Sex: Female
  Weight: 92 kg

DRUGS (26)
  1. CARBOCYSTEINE [Suspect]
     Active Substance: CARBOCYSTEINE
     Indication: Off label use
     Dosage: DOSE DESCRIPTION : 750 MG, QD
     Route: 065
     Dates: start: 20200917
  2. CARBOCYSTEINE [Suspect]
     Active Substance: CARBOCYSTEINE
     Indication: Product used for unknown indication
     Dosage: DOSE DESCRIPTION : 750 MG, QD
     Route: 065
     Dates: start: 20210917
  3. CARBOCYSTEINE [Suspect]
     Active Substance: CARBOCYSTEINE
     Indication: Rheumatoid arthritis
     Dosage: DOSE DESCRIPTION : 750 MG, QD
     Route: 065
     Dates: start: 20100917
  4. CARBOCYSTEINE [Suspect]
     Active Substance: CARBOCYSTEINE
     Dosage: DOSE DESCRIPTION : 750 MG, QD
     Route: 065
  5. CARBOCYSTEINE [Suspect]
     Active Substance: CARBOCYSTEINE
     Dosage: DOSE DESCRIPTION : UNK
     Route: 065
  6. CARBOCYSTEINE [Suspect]
     Active Substance: CARBOCYSTEINE
     Dosage: DOSE DESCRIPTION : 750 MG, QD
     Route: 065
     Dates: start: 20120917
  7. OMEPRAZOLE [Suspect]
     Active Substance: OMEPRAZOLE
     Indication: Abdominal discomfort
     Dosage: DOSE DESCRIPTION : 20 MG, QH
     Route: 065
  8. OMEPRAZOLE [Suspect]
     Active Substance: OMEPRAZOLE
     Indication: Abdominal discomfort
     Dosage: DOSE DESCRIPTION : 20 MG, QD
     Route: 065
     Dates: start: 20200917
  9. OMEPRAZOLE [Suspect]
     Active Substance: OMEPRAZOLE
     Indication: Product used for unknown indication
     Dosage: DOSE DESCRIPTION : 20 MG, QD
     Route: 065
     Dates: start: 20100917
  10. OMEPRAZOLE [Suspect]
     Active Substance: OMEPRAZOLE
     Dosage: DOSE DESCRIPTION : 20 MG ONCE A DAY
     Route: 065
     Dates: start: 20100917
  11. OMEPRAZOLE [Suspect]
     Active Substance: OMEPRAZOLE
     Dosage: DOSE DESCRIPTION : 20 MG, QID
     Route: 065
     Dates: start: 20100917
  12. OMEPRAZOLE [Suspect]
     Active Substance: OMEPRAZOLE
     Dosage: DOSE DESCRIPTION : 20 MG, BID  40 MG, QD 2X/DAY
     Route: 065
     Dates: start: 20100917
  13. OMEPRAZOLE [Suspect]
     Active Substance: OMEPRAZOLE
     Dosage: DOSE DESCRIPTION : 40 MG, QD (20 MG, 2X/DAY)
     Route: 065
  14. OMEPRAZOLE [Suspect]
     Active Substance: OMEPRAZOLE
     Dosage: DOSE DESCRIPTION : 20 MG, QH
     Route: 065
  15. OMEPRAZOLE [Suspect]
     Active Substance: OMEPRAZOLE
     Route: 065
  16. OMEPRAZOLE [Suspect]
     Active Substance: OMEPRAZOLE
     Dosage: DOSE DESCRIPTION : 80 MG, QD
     Route: 065
     Dates: start: 20100917
  17. OMEPRAZOLE [Suspect]
     Active Substance: OMEPRAZOLE
     Dosage: DOSE DESCRIPTION : 40 MG, QD  20 MG, 2X/DAY FOR STOMACH
     Route: 065
     Dates: start: 20100917
  18. OMEPRAZOLE [Suspect]
     Active Substance: OMEPRAZOLE
     Dosage: DOSE DESCRIPTION : 20 MG, 2X/DAY
     Route: 065
     Dates: start: 20100917
  19. ZINC [Suspect]
     Active Substance: ZINC
     Indication: Product used for unknown indication
     Dosage: DOSE DESCRIPTION : 750 MG, QD
     Route: 065
  20. ZINC [Suspect]
     Active Substance: ZINC
     Dosage: DOSE DESCRIPTION : 750 MG
     Route: 065
  21. ZINC [Suspect]
     Active Substance: ZINC
     Dosage: DOSE DESCRIPTION : 750 MG, QD
     Route: 065
  22. ZINC [Suspect]
     Active Substance: ZINC
     Route: 065
  23. ZINC [Suspect]
     Active Substance: ZINC
     Dosage: DOSE DESCRIPTION : 750 MG, QD
     Route: 065
  24. ZINC [Suspect]
     Active Substance: ZINC
     Dosage: DOSE DESCRIPTION : UNK
     Route: 065
  25. ZINC [Suspect]
     Active Substance: ZINC
     Dosage: DOSE DESCRIPTION : 750 MG, QD
     Route: 065
  26. ZINC [Suspect]
     Active Substance: ZINC
     Dosage: DOSE DESCRIPTION : UNKNOWN
     Route: 065

REACTIONS (1)
  - Knee arthroplasty [Unknown]

NARRATIVE: CASE EVENT DATE: 20201001
